FAERS Safety Report 4519985-8 (Version None)
Quarter: 2004Q4

REPORT INFORMATION
  Report Type: 
  Country: None (occurrence: None)
  Receive Date: 20041207
  Receipt Date: 20041130
  Transmission Date: 20050328
  Serious: Yes (Life-Threatening, Disabling)
  Sender: FDA-Public Use
  Company Number: US-MERCK-0412USA00073

PATIENT
  Age: 56 Year
  Sex: Male

DRUGS (2)
  1. VIOXX [Suspect]
     Indication: SURGERY
     Route: 048
     Dates: start: 19990101, end: 20040901
  2. NORVASC [Concomitant]
     Route: 065

REACTIONS (2)
  - BLOOD PRESSURE FLUCTUATION [None]
  - LOSS OF CONSCIOUSNESS [None]
